FAERS Safety Report 18586983 (Version 1)
Quarter: 2020Q4

REPORT INFORMATION
  Report Type: Spontaneous
  Country: US (occurrence: US)
  Receive Date: 20201207
  Receipt Date: 20201207
  Transmission Date: 20210114
  Serious: No
  Sender: FDA-Public Use
  Company Number: US-PFIZER INC-2020480475

PATIENT

DRUGS (4)
  1. MEKTOVI [Suspect]
     Active Substance: BINIMETINIB
     Indication: METASTATIC MALIGNANT MELANOMA
     Dosage: 45 MG, 2X/DAY
  2. BRAFTOVI [Suspect]
     Active Substance: ENCORAFENIB
     Indication: METASTATIC MALIGNANT MELANOMA
     Dosage: 450 MG, 1X/DAY
  3. MEKTOVI [Suspect]
     Active Substance: BINIMETINIB
     Indication: BRAF GENE MUTATION
  4. BRAFTOVI [Suspect]
     Active Substance: ENCORAFENIB
     Indication: BRAF GENE MUTATION

REACTIONS (5)
  - Peripheral swelling [Unknown]
  - Dyspnoea [Unknown]
  - Ejection fraction decreased [Unknown]
  - Arthralgia [Unknown]
  - Pyrexia [Unknown]
